FAERS Safety Report 9627097 (Version 3)
Quarter: 2013Q4

REPORT INFORMATION
  Report Type: Report from Study
  Country: DE (occurrence: DE)
  Receive Date: 20131016
  Receipt Date: 20131203
  Transmission Date: 20140711
  Serious: Yes (Hospitalization)
  Sender: FDA-Public Use
  Company Number: PHHY2013DE104010

PATIENT
  Sex: Female
  Weight: 53.3 kg

DRUGS (3)
  1. AFINITOR [Suspect]
     Indication: BREAST CANCER METASTATIC
     Dosage: 10 MG, QD
     Route: 048
     Dates: start: 20130801, end: 20130925
  2. EXEMESTANE [Concomitant]
     Indication: BREAST CANCER METASTATIC
     Dosage: 25 MG, QD
     Route: 048
     Dates: start: 20130801, end: 20130925
  3. AREDIA [Concomitant]
     Dosage: 90 MG, QMO
     Dates: start: 20130723

REACTIONS (2)
  - General physical health deterioration [Recovering/Resolving]
  - Haemoglobin decreased [Recovered/Resolved]
